FAERS Safety Report 4849426-2 (Version None)
Quarter: 2005Q4

REPORT INFORMATION
  Report Type: 
  Country: None (occurrence: None)
  Receive Date: 20051207
  Receipt Date: 20051130
  Transmission Date: 20060501
  Serious: Yes (Hospitalization)
  Sender: FDA-Public Use
  Company Number: 2005BI019259

PATIENT
  Age: 43 Year
  Sex: Female

DRUGS (8)
  1. AVONEX [Suspect]
     Indication: MULTIPLE SCLEROSIS
     Dosage: 30 UG;QW;IM
     Route: 030
     Dates: start: 20010101
  2. AVONEX [Suspect]
     Indication: MULTIPLE SCLEROSIS
     Dosage: 30 UG;QW;IM
     Route: 030
  3. METHADONE [Concomitant]
  4. ESTRADIOL INJ [Concomitant]
  5. TRAMADOL HCL [Concomitant]
  6. ALPRAZOLAM [Concomitant]
  7. LASIX [Concomitant]
  8. SKELAXIN [Concomitant]

REACTIONS (2)
  - INJURY [None]
  - VICTIM OF CRIME [None]
